FAERS Safety Report 5545229-4 (Version None)
Quarter: 2007Q4

REPORT INFORMATION
  Report Type: 
  Country: None (occurrence: None)
  Receive Date: 20071123
  Receipt Date: 20061003
  Transmission Date: 20080405
  Serious: Yes (Hospitalization)
  Sender: FDA-Public Use
  Company Number: US-JNJFOC-20061001362

PATIENT
  Age: 52 Year
  Sex: Male
  Weight: 129.2752 kg

DRUGS (2)
  1. LEVAQUIN [Suspect]
     Indication: PROSTATITIS
     Dosage: 500 MG, 1 IN 1 DAY, ORAL
     Route: 048
     Dates: start: 20060905, end: 20060915
  2. CORGARD (NADOLOL) CAPSULES [Concomitant]

REACTIONS (1)
  - PLATELET COUNT DECREASED [None]
